FAERS Safety Report 4803052-X (Version None)
Quarter: 2005Q4

REPORT INFORMATION
  Report Type: 
  Country: None (occurrence: None)
  Receive Date: 20051019
  Receipt Date: 20051011
  Transmission Date: 20060501
  Serious: Yes (Hospitalization)
  Sender: FDA-Public Use
  Company Number: 419250

PATIENT
  Age: 90 Year
  Sex: Male

DRUGS (10)
  1. CARVEDILOL [Suspect]
     Indication: ATRIAL FIBRILLATION
     Dosage: 1.25MG TWICE PER DAY
     Route: 048
     Dates: start: 20040329, end: 20040622
  2. ASPIRIN [Concomitant]
     Dates: start: 20040220, end: 20040623
  3. MAGNESIUM OXIDE [Concomitant]
     Dates: start: 20040220, end: 20040621
  4. LASIX [Concomitant]
     Dates: start: 20040220, end: 20040621
  5. ALLOPURINOL [Concomitant]
     Dates: start: 20040220, end: 20040621
  6. TENORMIN [Concomitant]
     Dates: start: 20040220, end: 20040318
  7. VERAPAMIL [Concomitant]
     Dates: start: 20040227, end: 20040621
  8. CYANOCOBALAMIN [Concomitant]
     Dates: start: 20040521
  9. IBUDILAST [Concomitant]
     Dates: start: 20040521
  10. OPALMON [Concomitant]
     Dates: start: 20040607

REACTIONS (4)
  - CHEMICAL POISONING [None]
  - DEPRESSION [None]
  - LACUNAR INFARCTION [None]
  - SUICIDE ATTEMPT [None]
